FAERS Safety Report 8839219 (Version 1)
Quarter: 2012Q4

REPORT INFORMATION
  Report Type: 
  Country: ES (occurrence: ES)
  Receive Date: 20121015
  Receipt Date: 20121015
  Transmission Date: 20130627
  Serious: Yes (Other)
  Sender: FDA-Public Use
  Company Number: ES-SHIRE-SPV1-2012-00906

PATIENT
  Age: 24 Year
  Sex: Female

DRUGS (6)
  1. XAGRID [Suspect]
     Indication: ESSENTIAL THROMBOCYTHAEMIA
     Dosage: UNK UNK, Unknown
     Route: 065
     Dates: start: 200502, end: 200809
  2. ACETYLSALICYLIC ACID [Concomitant]
     Indication: ESSENTIAL THROMBOCYTHAEMIA
     Dosage: 100 mg, 1x/day:qd
     Route: 065
  3. ACETYLSALICYLIC ACID [Concomitant]
     Indication: PROPHYLAXIS
     Dosage: 100 mg, 1x/day:qd
     Route: 065
     Dates: start: 200801, end: 200809
  4. ACETYLSALICYLIC ACID [Concomitant]
     Dosage: UNK, Unknown
     Route: 065
  5. HYDROXYUREA [Concomitant]
     Indication: ESSENTIAL THROMBOCYTHAEMIA
     Dosage: UNK UNK, Unknown
     Route: 065
     Dates: start: 2004, end: 200502
  6. HYDROXYUREA [Concomitant]
     Dosage: UNK, Unknown
     Route: 065
     Dates: end: 199912

REACTIONS (3)
  - Transient ischaemic attack [Unknown]
  - Pulmonary alveolar haemorrhage [Recovered/Resolved]
  - Epistaxis [Recovered/Resolved]
